FAERS Safety Report 17985622 (Version 2)
Quarter: 2021Q3

REPORT INFORMATION
  Report Type: Report from Study
  Country: CA (occurrence: CA)
  Receive Date: 20200706
  Receipt Date: 20210802
  Transmission Date: 20211014
  Serious: Yes (Other)
  Sender: FDA-Public Use
  Company Number: CA-JNJFOC-20200638642

PATIENT
  Age: 86 Year
  Sex: Male
  Weight: 55 kg

DRUGS (2)
  1. STELARA [Suspect]
     Active Substance: USTEKINUMAB
  2. STELARA [Suspect]
     Active Substance: USTEKINUMAB
     Indication: CROHN^S DISEASE
     Dosage: LBSOUMB : JAN?2024
     Route: 058

REACTIONS (12)
  - Speech disorder [Unknown]
  - Facial asymmetry [Unknown]
  - Lip oedema [Unknown]
  - Wound secretion [Unknown]
  - Skin discolouration [Unknown]
  - Oedema [Unknown]
  - Asthenia [Unknown]
  - Dizziness [Unknown]
  - Throat cancer [Unknown]
  - Dry skin [Unknown]
  - Fatigue [Unknown]
  - General physical health deterioration [Unknown]

NARRATIVE: CASE EVENT DATE: 2021
